FAERS Safety Report 9570417 (Version 1)
Quarter: 2013Q3

REPORT INFORMATION
  Report Type: Spontaneous
  Country: US (occurrence: US)
  Receive Date: 20130930
  Receipt Date: 20130930
  Transmission Date: 20140515
  Serious: No
  Sender: FDA-Public Use
  Company Number: US-AMGEN-USASP2013063820

PATIENT
  Age: 60 Year
  Sex: Female
  Weight: 65.76 kg

DRUGS (6)
  1. ENBREL [Suspect]
     Indication: PRODUCT USED FOR UNKNOWN INDICATION
     Dosage: 50 MG, QWK
     Route: 058
  2. METHOTREXATE [Concomitant]
     Dosage: 2.5 MG, UNK
  3. NORVASC [Concomitant]
     Dosage: 2.5 MG, UNK
  4. VICODIN [Concomitant]
     Dosage: 5-300 MG, UNK
  5. FENTANYL [Concomitant]
     Dosage: 12 MUG/HR, UNK
  6. FOLIC ACID [Concomitant]
     Dosage: UNK

REACTIONS (1)
  - Upper respiratory tract infection [Unknown]
